FAERS Safety Report 20045945 (Version 1)
Quarter: 2021Q4

REPORT INFORMATION
  Report Type: Spontaneous
  Country: US (occurrence: None)
  Receive Date: 20211108
  Receipt Date: 20211108
  Transmission Date: 20220303
  Serious: Yes (Disabling)
  Sender: FDA-Public Use
  Company Number: US-ROCHE-2952739

PATIENT
  Age: 67 Year
  Sex: Male

DRUGS (1)
  1. ESBRIET [Suspect]
     Active Substance: PIRFENIDONE
     Indication: Idiopathic pulmonary fibrosis
     Dosage: 3 TABLETS, 267MG/TAB, THREE TIMES PER DAY WITH MEALS; 801MG THREE TIMES PER DAY
     Route: 048
     Dates: start: 20210825, end: 20211021

REACTIONS (1)
  - Cough [Unknown]

NARRATIVE: CASE EVENT DATE: 20210901
